FAERS Safety Report 8457566-4 (Version None)
Quarter: 2012Q2

REPORT INFORMATION
  Report Type: 
  Country: None (occurrence: None)
  Receive Date: 20120622
  Receipt Date: 20120614
  Transmission Date: 20120825
  Serious: Yes (Hospitalization)
  Sender: FDA-Public Use
  Company Number: US-BIOGENIDEC-2012BI019664

PATIENT
  Age: 39 Year
  Sex: Male

DRUGS (3)
  1. TYSABRI [Suspect]
     Indication: MULTIPLE SCLEROSIS
     Route: 042
     Dates: start: 20090514, end: 20091112
  2. TYSABRI [Suspect]
     Route: 042
     Dates: start: 20111121
  3. TYSABRI [Suspect]
     Route: 042
     Dates: start: 20091210, end: 20110602

REACTIONS (5)
  - TREMOR [None]
  - FATIGUE [None]
  - PERONEAL NERVE PALSY [None]
  - LOSS OF CONTROL OF LEGS [None]
  - VERTIGO [None]
